FAERS Safety Report 4637419-X (Version None)
Quarter: 2005Q2

REPORT INFORMATION
  Report Type: 
  Country: None (occurrence: None)
  Receive Date: 20050418
  Receipt Date: 20050307
  Transmission Date: 20051028
  Serious: Yes (Other)
  Sender: FDA-Public Use
  Company Number: PHRM2005FR01009

PATIENT
  Age: 87 Year
  Sex: Female
  Weight: 48 kg

DRUGS (4)
  1. ZOMETA [Suspect]
     Indication: METASTASES TO BONE
     Dosage: 4 MG, QMO
     Route: 042
     Dates: start: 20040901, end: 20050221
  2. MEDROL [Suspect]
     Dosage: 16 MG DAILY
     Dates: start: 20040801
  3. MORPHINE [Concomitant]
     Dosage: 240 A?G PER DAY
     Dates: start: 20040801
  4. ACTISKENAN [Concomitant]
     Dosage: 20 MG, TID
     Dates: start: 20040801, end: 20050201

REACTIONS (5)
  - DRUG INTERACTION POTENTIATION [None]
  - IMPAIRED HEALING [None]
  - MOUTH INJURY [None]
  - MOUTH ULCERATION [None]
  - PAIN IN JAW [None]
